FAERS Safety Report 9420306 (Version 1)
Quarter: 2013Q3

REPORT INFORMATION
  Report Type: Spontaneous
  Country: US (occurrence: US)
  Receive Date: 20130725
  Receipt Date: 20130725
  Transmission Date: 20140515
  Serious: Yes (Hospitalization, Disabling, Other)
  Sender: FDA-Public Use
  Company Number: US-009507513-0711USA02148

PATIENT
  Sex: Female
  Weight: 56.7 kg

DRUGS (5)
  1. FOSAMAX [Suspect]
     Indication: OSTEOPOROSIS
     Dosage: 10 MG, QD
     Route: 048
     Dates: start: 199802, end: 200605
  2. FOSAMAX [Suspect]
     Dosage: 70 MG, UNK
     Route: 048
  3. FOSAMAX [Suspect]
     Dosage: 5 MG, QD
     Route: 048
  4. LIPITOR [Concomitant]
     Dosage: 10 MG, UNK
  5. SPORANOX [Concomitant]

REACTIONS (36)
  - Ovarian cyst [Unknown]
  - Incisional hernia [Not Recovered/Not Resolved]
  - Deafness [Unknown]
  - Peritonitis [Unknown]
  - Appendicitis [Unknown]
  - Rotator cuff syndrome [Unknown]
  - Adverse event [Unknown]
  - Osteonecrosis of jaw [Unknown]
  - Post procedural infection [Recovered/Resolved]
  - Nasopharyngitis [Unknown]
  - Implant site infection [Unknown]
  - Dermatophytosis [Unknown]
  - Eczema nummular [Unknown]
  - Hyperkeratosis [Unknown]
  - Actinic keratosis [Unknown]
  - Dry mouth [Unknown]
  - Pulpitis dental [Unknown]
  - Anxiety [Unknown]
  - Tongue disorder [Unknown]
  - Diverticulum [Unknown]
  - Incisional hernia [Unknown]
  - Nasal septum deviation [Unknown]
  - Carpal tunnel syndrome [Unknown]
  - Epistaxis [Unknown]
  - Nasal congestion [Unknown]
  - Dysphonia [Unknown]
  - Snoring [Unknown]
  - Nasal ulcer [Unknown]
  - Rib fracture [Unknown]
  - Renal cyst [Unknown]
  - Headache [Unknown]
  - Oedema peripheral [Unknown]
  - Diarrhoea [Unknown]
  - Gastrooesophageal reflux disease [Unknown]
  - Odynophagia [Unknown]
  - Abdominal pain [Unknown]
